FAERS Safety Report 20074119 (Version 2)
Quarter: 2021Q4

REPORT INFORMATION
  Report Type: Spontaneous
  Country: CN (occurrence: CN)
  Receive Date: 20211116
  Receipt Date: 20211124
  Transmission Date: 20220304
  Serious: Yes (Hospitalization, Other)
  Sender: FDA-Public Use
  Company Number: CN-MLMSERVICE-20211027-3188437-1

PATIENT
  Age: 55 Year
  Sex: Female

DRUGS (1)
  1. METHYLPREDNISOLONE [Suspect]
     Active Substance: METHYLPREDNISOLONE
     Indication: Sarcoidosis
     Dosage: 24 MG, 1X/DAY
     Route: 048
     Dates: start: 20160620, end: 20170301

REACTIONS (1)
  - Pneumonia cryptococcal [Recovered/Resolved with Sequelae]

NARRATIVE: CASE EVENT DATE: 20170101
